FAERS Safety Report 5738736-2 (Version None)
Quarter: 2008Q2

REPORT INFORMATION
  Report Type: 
  Country: None (occurrence: None)
  Receive Date: 20080515
  Receipt Date: 20080513
  Transmission Date: 20081010
  Serious: Yes (Other)
  Sender: FDA-Public Use
  Company Number: DK-TEVA-171488USA

PATIENT
  Age: 28 Year
  Sex: Female

DRUGS (2)
  1. PIMOZIDE TABLETS [Suspect]
     Indication: DRUG USE FOR UNKNOWN INDICATION
     Dosage: 1 MG
     Route: 048
     Dates: start: 20070401, end: 20080401
  2. LEVOTHYROXINE SODIUM [Concomitant]

REACTIONS (2)
  - DYSPHAGIA [None]
  - SUFFOCATION FEELING [None]
